FAERS Safety Report 22081605 (Version 1)
Quarter: 2023Q1

REPORT INFORMATION
  Report Type: Spontaneous
  Country: US (occurrence: US)
  Receive Date: 20230310
  Receipt Date: 20230310
  Transmission Date: 20230418
  Serious: Yes (Hospitalization, Other)
  Sender: FDA-Public Use
  Company Number: US-GBT-020669

PATIENT
  Age: 55 Year
  Sex: Female

DRUGS (1)
  1. OXBRYTA [Suspect]
     Active Substance: VOXELOTOR
     Indication: Sickle cell disease
     Route: 048
     Dates: start: 20210128

REACTIONS (5)
  - Pericardial effusion [Unknown]
  - Sickle cell anaemia with crisis [Recovered/Resolved]
  - Sickle cell anaemia with crisis [Unknown]
  - Pneumonia [Unknown]
  - Pleural effusion [Unknown]

NARRATIVE: CASE EVENT DATE: 20221201
